FAERS Safety Report 13274770 (Version 1)
Quarter: 2017Q1

REPORT INFORMATION
  Report Type: Report from Study
  Country: US (occurrence: US)
  Receive Date: 20170227
  Receipt Date: 20170227
  Transmission Date: 20170428
  Serious: Yes (Other)
  Sender: FDA-Public Use
  Company Number: US-GILEAD-2017-0259093

PATIENT
  Sex: Male

DRUGS (1)
  1. LEDIPASVIR/SOFOSBUVIR [Suspect]
     Active Substance: LEDIPASVIR\SOFOSBUVIR
     Indication: HEPATITIS C
     Dosage: 1 DF, QD
     Route: 048
     Dates: start: 20161223

REACTIONS (6)
  - Rheumatoid arthritis [Unknown]
  - Anxiety [Unknown]
  - Thinking abnormal [Unknown]
  - Asthenia [Unknown]
  - Cough [Unknown]
  - Weight increased [Unknown]

NARRATIVE: CASE EVENT DATE: 20170218
